FAERS Safety Report 7060483-8 (Version None)
Quarter: 2010Q4

REPORT INFORMATION
  Report Type: 
  Country: None (occurrence: None)
  Receive Date: 20101025
  Receipt Date: 20101013
  Transmission Date: 20110411
  Serious: Yes (Other)
  Sender: FDA-Public Use
  Company Number: MX-PFIZER INC-2010113335

PATIENT
  Age: 37 Year
  Sex: Female
  Weight: 54 kg

DRUGS (2)
  1. LYRICA [Suspect]
     Dosage: 75 MG, 1X/DAY
     Route: 048
     Dates: start: 20100903, end: 20100903
  2. TRAMADOL [Concomitant]
     Indication: OSTEOARTHRITIS
     Dosage: UNK
     Route: 048
     Dates: start: 20100903

REACTIONS (7)
  - DIZZINESS [None]
  - EYE PAIN [None]
  - HEADACHE [None]
  - PHOTOPSIA [None]
  - SOMNOLENCE [None]
  - TACHYCARDIA [None]
  - TRIGEMINAL NERVE DISORDER [None]
